FAERS Safety Report 7331144-2 (Version None)
Quarter: 2011Q1

REPORT INFORMATION
  Report Type: 
  Country: None (occurrence: None)
  Receive Date: 20110304
  Receipt Date: 20110223
  Transmission Date: 20110831
  Serious: Yes (Hospitalization)
  Sender: FDA-Public Use
  Company Number: ES-JNJFOC-20110208259

PATIENT
  Age: 68 Year
  Sex: Female

DRUGS (2)
  1. REMICADE [Suspect]
     Indication: CROHN'S DISEASE
     Route: 042
  2. AZATHIOPRINE SODIUM [Concomitant]
     Indication: CROHN'S DISEASE

REACTIONS (2)
  - TUBERCULOUS PLEURISY [None]
  - PULMONARY TUBERCULOSIS [None]
